FAERS Safety Report 5235528-8 (Version None)
Quarter: 2007Q1

REPORT INFORMATION
  Report Type: 
  Country: None (occurrence: None)
  Receive Date: 20070212
  Receipt Date: 20070207
  Transmission Date: 20070707
  Serious: Yes (Hospitalization)
  Sender: FDA-Public Use
  Company Number: US-BRISTOL-MYERS SQUIBB COMPANY-13671920

PATIENT
  Age: 58 Year
  Sex: Female

DRUGS (4)
  1. CYTOXAN [Suspect]
     Indication: BREAST CANCER
     Dates: start: 20061121, end: 20061121
  2. ADRIAMYCIN PFS [Suspect]
     Indication: BREAST CANCER
     Dates: start: 20061121, end: 20061121
  3. BEVACIZUMAB [Suspect]
     Indication: BREAST CANCER
     Dates: start: 20070123, end: 20070123
  4. NEULASTA [Suspect]
     Indication: BREAST CANCER
     Dates: start: 20070124, end: 20070124

REACTIONS (1)
  - PROCTALGIA [None]
